FAERS Safety Report 11240134 (Version 2)
Quarter: 2015Q4

REPORT INFORMATION
  Report Type: Spontaneous
  Country: DE (occurrence: DE)
  Receive Date: 20150706
  Receipt Date: 20151026
  Transmission Date: 20160304
  Serious: Yes (Hospitalization)
  Sender: FDA-Public Use
  Company Number: DE-TEVA-575695GER

PATIENT
  Age: 54 Year
  Sex: Male

DRUGS (2)
  1. ZOSTEX [Interacting]
     Active Substance: BRIVUDINE
     Indication: ORAL HERPES
     Route: 048
     Dates: start: 20150220, end: 20150220
  2. CAPECITABINE 500MG [Suspect]
     Active Substance: CAPECITABINE
     Indication: GASTRIC CANCER
     Dosage: 3-0-3 FROM DAY 1-21, PATIENT RECEIVED 2 CYCLES
     Route: 048
     Dates: end: 20150225

REACTIONS (14)
  - Anaemia [Recovering/Resolving]
  - Dysgeusia [Unknown]
  - Thrombocytopenia [Recovering/Resolving]
  - Mucosal inflammation [Recovering/Resolving]
  - Leukopenia [Recovering/Resolving]
  - Drug interaction [Unknown]
  - Palmar-plantar erythrodysaesthesia syndrome [Unknown]
  - Pica [Unknown]
  - Haematochezia [Unknown]
  - Bone marrow toxicity [None]
  - Pancytopenia [Not Recovered/Not Resolved]
  - Bone marrow disorder [Unknown]
  - Agranulocytosis [Unknown]
  - Odynophagia [None]

NARRATIVE: CASE EVENT DATE: 20150220
